FAERS Safety Report 24248444 (Version 1)
Quarter: 2024Q3

REPORT INFORMATION
  Report Type: Other
  Country: DO (occurrence: DO)
  Receive Date: 20240826
  Receipt Date: 20240826
  Transmission Date: 20241016
  Serious: Yes (Other)
  Sender: TOLMAR
  Company Number: DO-TOLMAR, INC.-24DO051508

PATIENT
  Sex: Male
  Weight: 81.633 kg

DRUGS (4)
  1. ELIGARD [Suspect]
     Active Substance: LEUPROLIDE ACETATE
     Indication: Prostate cancer
     Dosage: 45 MILLIGRAM, Q 6 MONTH
     Route: 058
     Dates: start: 20240426
  2. ELIGARD [Suspect]
     Active Substance: LEUPROLIDE ACETATE
     Indication: Prostate cancer
     Dosage: UNK
  3. RADIATION THERAPY [Suspect]
     Active Substance: RADIATION THERAPY
     Indication: Prostate cancer
     Dosage: UNK
     Dates: end: 20240518
  4. METFORMIN [Concomitant]
     Active Substance: METFORMIN HYDROCHLORIDE
     Indication: Diabetes mellitus
     Dosage: 850 MILLIGRAM, BID
     Dates: end: 20240518

REACTIONS (7)
  - Weight decreased [Unknown]
  - Post procedural diarrhoea [Not Recovered/Not Resolved]
  - Psychological trauma [Not Recovered/Not Resolved]
  - Anorectal discomfort [Not Recovered/Not Resolved]
  - Prostatic disorder [Not Recovered/Not Resolved]
  - Chills [Not Recovered/Not Resolved]
  - Urinary incontinence [Not Recovered/Not Resolved]
